FAERS Safety Report 5140506-3 (Version None)
Quarter: 2006Q4

REPORT INFORMATION
  Report Type: 
  Country: None (occurrence: None)
  Receive Date: 20061027
  Receipt Date: 20061027
  Transmission Date: 20070319
  Serious: Yes (Other)
  Sender: FDA-Public Use
  Company Number: None

PATIENT
  Age: 49 Year
  Sex: Male
  Weight: 95.2554 kg

DRUGS (1)
  1. TRAMADOL HCL [Suspect]
     Indication: JOINT SPRAIN
     Dosage: 2 Q6 PO
     Route: 048
     Dates: start: 20061022, end: 20061025

REACTIONS (1)
  - PRURITUS [None]
